FAERS Safety Report 16350204 (Version 3)
Quarter: 2019Q2

REPORT INFORMATION
  Report Type: Report from Study
  Country: BE (occurrence: BE)
  Receive Date: 20190523
  Receipt Date: 20190611
  Transmission Date: 20190711
  Serious: Yes (Hospitalization)
  Sender: FDA-Public Use
  Company Number: BE-AMGEN-BELCT2019080919

PATIENT
  Age: 61 Year
  Sex: Female
  Weight: 71.8 kg

DRUGS (25)
  1. LINISOL [Concomitant]
     Active Substance: LIDOCAINE HYDROCHLORIDE
     Dosage: 10 MILLILITER AND 40-80  MILLIGRAM
     Dates: start: 20190402, end: 20190516
  2. EMCONCOR [Concomitant]
     Active Substance: BISOPROLOL FUMARATE
     Dosage: 5 MILLIGRAM
     Route: 048
     Dates: start: 2004
  3. ZOMETA [Concomitant]
     Active Substance: ZOLEDRONIC ACID
     Dosage: 5 MILLIGRAM
     Route: 030
     Dates: start: 20190220
  4. TALIMOGENE LAHERPAREPVEC [Suspect]
     Active Substance: TALIMOGENE LAHERPAREPVEC
     Indication: TRIPLE NEGATIVE BREAST CANCER
     Dosage: 4 MILLILITER
     Route: 026
     Dates: start: 20190402
  5. PARACETAMOL [Concomitant]
     Active Substance: ACETAMINOPHEN
     Dosage: 1 GRAM
     Route: 042
     Dates: start: 20190424, end: 20190516
  6. SODIUM CHLORIDE. [Concomitant]
     Active Substance: SODIUM CHLORIDE
     Dosage: 350.7 MILLIGRAM
     Route: 048
     Dates: start: 20190516, end: 20190519
  7. OMEPRAZOLE. [Concomitant]
     Active Substance: OMEPRAZOLE
     Dosage: 10 MILLIGRAM
     Dates: start: 2004
  8. PANTOMED [PANTOPRAZOLE SODIUM SESQUIHYDRATE] [Concomitant]
     Dosage: 20 MILLIGRAM
     Route: 048
     Dates: start: 20190516, end: 20190519
  9. MOVICOL [Concomitant]
     Active Substance: POLYETHYLENE GLYCOL 3350\POTASSIUM CHLORIDE\SODIUM BICARBONATE\SODIUM CHLORIDE
     Dosage: 1 UNK
     Route: 048
     Dates: start: 201611
  10. NASONEX [Concomitant]
     Active Substance: MOMETASONE FUROATE
     Dosage: 1 UNK
     Route: 045
     Dates: start: 201901
  11. PROPOLIPID [Concomitant]
     Active Substance: PROPOFOL
     Dosage: 20 MILLILITER AND 100 MILLIGRAM
     Dates: start: 20190402, end: 20190516
  12. EPHEDRINE. [Concomitant]
     Active Substance: EPHEDRINE
     Dosage: 10 MILLIGRAM
     Route: 042
     Dates: start: 20190516, end: 20190516
  13. ARTIFICIAL TEARS [PROPYLENE GLYCOL] [Concomitant]
     Dosage: 1 GTT DROPS
     Route: 047
     Dates: start: 20170125
  14. MACROGOL [Concomitant]
     Active Substance: POLYETHYLENE GLYCOLS
     Dosage: 13.125 GRAM
     Route: 048
     Dates: start: 20190516, end: 20190519
  15. POTASSIUM CHLORIDE. [Concomitant]
     Active Substance: POTASSIUM CHLORIDE
     Dosage: 46.6 MILLIGRAM
     Route: 048
     Dates: start: 20190516, end: 20190519
  16. VITAMIN D [ERGOCALCIFEROL] [Concomitant]
     Active Substance: ERGOCALCIFEROL
     Dosage: 1 UNK
     Route: 048
     Dates: start: 2014
  17. ALFENTANIL. [Concomitant]
     Active Substance: ALFENTANIL
     Dosage: 50 MICROGRAM  AND 0.75 MILLIGRAM
     Route: 042
     Dates: start: 20190424, end: 20190516
  18. SODIUM HYDROGEN CARBONATE [Concomitant]
     Active Substance: SODIUM BICARBONATE
     Dosage: 178.5 MILLIGRAM
     Route: 048
     Dates: start: 20190516, end: 20190519
  19. L-THYROXINE [LEVOTHYROXINE] [Concomitant]
     Active Substance: LEVOTHYROXINE
     Dosage: 50 MICROGRAM
     Route: 048
     Dates: start: 1990
  20. XANAX [Concomitant]
     Active Substance: ALPRAZOLAM
     Dosage: 0.25 MILLIGRAM
     Route: 048
     Dates: start: 20190214
  21. ATEZOLIZUMAB. [Suspect]
     Active Substance: ATEZOLIZUMAB
     Indication: TRIPLE NEGATIVE BREAST CANCER
     Dosage: 250 MILLILITER
     Route: 042
     Dates: start: 20190402
  22. METFORMAX [Concomitant]
     Active Substance: METFORMIN HYDROCHLORIDE
     Dosage: 425 MILLIGRAM
     Route: 048
     Dates: start: 2017, end: 20190403
  23. MIDAZOLAM [Concomitant]
     Active Substance: MIDAZOLAM HYDROCHLORIDE
     Dosage: 1 MILLIGRAM
     Route: 042
     Dates: start: 20190424, end: 20190516
  24. KETALAR [Concomitant]
     Active Substance: KETAMINE HYDROCHLORIDE
     Dosage: 15-25 MILLIGRAM
     Route: 042
     Dates: start: 20190424, end: 20190516
  25. OXYGEN. [Concomitant]
     Active Substance: OXYGEN
     Dosage: 1 UNK
     Route: 045
     Dates: start: 20190424, end: 20190516

REACTIONS (1)
  - Orthostatic hypotension [Recovered/Resolved]

NARRATIVE: CASE EVENT DATE: 20190517
